FAERS Safety Report 24434243 (Version 1)
Quarter: 2024Q4

REPORT INFORMATION
  Report Type: Spontaneous
  Country: IE (occurrence: IE)
  Receive Date: 20241014
  Receipt Date: 20241014
  Transmission Date: 20250114
  Serious: Yes (Other)
  Sender: BIOVITRUM
  Company Number: IE-BIOVITRUM-2024-IE-013076

PATIENT
  Age: 30 Year
  Sex: Female

DRUGS (1)
  1. AVATROMBOPAG [Suspect]
     Active Substance: AVATROMBOPAG
     Indication: Immune thrombocytopenia

REACTIONS (2)
  - Pneumonia [Unknown]
  - Pulmonary embolism [Unknown]
